FAERS Safety Report 5494748-8 (Version None)
Quarter: 2007Q4

REPORT INFORMATION
  Report Type: 
  Country: None (occurrence: None)
  Receive Date: 20071023
  Receipt Date: 20071023
  Transmission Date: 20080405
  Serious: Yes (Hospitalization)
  Sender: FDA-Public Use
  Company Number: None

PATIENT
  Sex: Male
  Weight: 87.5 kg

DRUGS (9)
  1. DURAGESIC-100 [Suspect]
     Indication: PAIN
     Dosage: 25 MCG Q 3 DAYS DERM
     Route: 050
  2. IRESSA [Suspect]
     Dosage: 250 MG ONCE DAILY ORAL
     Route: 048
     Dates: start: 20070219, end: 20071009
  3. COMPAZINE [Suspect]
     Indication: NAUSEA
     Dosage: 10 MG Q 6 HOURS PRN ORAL
     Route: 048
  4. ATIVAN [Suspect]
     Dosage: 0.5 MG Q 8 HR PRN ORAL
     Route: 048
  5. NOVOLIN 70/30 [Suspect]
     Dosage: 20 UNITS Q 8 HR SQ
     Route: 058
  6. MORPHINE [Suspect]
     Indication: BREAKTHROUGH PAIN
     Dosage: 1 TSP PRN ORAL
     Route: 048
  7. ZOLOFT [Suspect]
     Dosage: 50 MG 2 TAB HS ORAL
     Route: 048
  8. PLAVIX [Suspect]
     Dosage: 75 MG QD ORAL
     Route: 048
  9. NEURONTIN [Suspect]
     Dosage: 300 MG BID ORAL
     Route: 048

REACTIONS (4)
  - HAEMOPTYSIS [None]
  - OSTEONECROSIS [None]
  - PNEUMONIA [None]
  - TOOTH DISORDER [None]
